FAERS Safety Report 8268086-4 (Version None)
Quarter: 2012Q2

REPORT INFORMATION
  Report Type: 
  Country: None (occurrence: None)
  Receive Date: 20120409
  Receipt Date: 20120326
  Transmission Date: 20120825
  Serious: Yes (Life-Threatening, Hospitalization)
  Sender: FDA-Public Use
  Company Number: KW-MYLANLABS-2012S1006818

PATIENT
  Age: 36 Year
  Sex: Male

DRUGS (4)
  1. METFORMIN HCL [Suspect]
     Indication: TOXICITY TO VARIOUS AGENTS
     Dosage: 45G
     Route: 048
  2. METFORMIN HCL [Suspect]
     Route: 065
  3. METFORMIN HCL [Suspect]
     Route: 065
  4. METFORMIN HCL [Suspect]
     Indication: TYPE 2 DIABETES MELLITUS
     Dosage: 45G
     Route: 048

REACTIONS (5)
  - HAEMOLYTIC ANAEMIA [None]
  - CARDIAC ARREST [None]
  - OVERDOSE [None]
  - LACTIC ACIDOSIS [None]
  - PANCREATITIS [None]
